FAERS Safety Report 9532607 (Version 1)
Quarter: 2013Q2

REPORT INFORMATION
  Report Type: Spontaneous
  Country: US (occurrence: None)
  Receive Date: 20130503
  Receipt Date: 20130503
  Transmission Date: 20140414
  Serious: Yes (Other)
  Sender: FDA-Public Use
  Company Number: 1000041507

PATIENT
  Age: 78 Year
  Sex: Female

DRUGS (9)
  1. DALIRESP [Suspect]
     Indication: CHRONIC OBSTRUCTIVE PULMONARY DISEASE
     Dosage: 500 MCG (500 MCG, 1 IN 1
     Route: 048
     Dates: start: 20121111
  2. COMBIVENT (COMBIVENT) (COMBIVENT) [Concomitant]
  3. SPIRIVA (TIOTROPIUM BROMIDE) (TIOTROPIUM BROMIDE) [Concomitant]
  4. NEXIUM (ESOMEPRAZOLE) (ESOMEPRAZOLE) [Concomitant]
  5. PAXIL [Concomitant]
  6. SYNTHROID (LEVOTHYROXINE SODIUM) (LEVOTHYROXINE SODIUM) [Concomitant]
  7. CARDIZEM LA (DILTIAZEM HYDROCHLORIDE) (DILTIAZEM HYDROCHORIDE) [Concomitant]
  8. EVISTA (RALOXIFENE HYDROCHLORIDE) (RALOXIFENE HYDROCHLORIDE) [Concomitant]
  9. FISH OIL  (FISH OIL) (FISH OIL) [Concomitant]

REACTIONS (3)
  - Weight decreased [None]
  - Diarrhoea [None]
  - Nausea [None]
